FAERS Safety Report 7571814-4 (Version None)
Quarter: 2011Q2

REPORT INFORMATION
  Report Type: 
  Country: None (occurrence: None)
  Receive Date: 20110624
  Receipt Date: 20110617
  Transmission Date: 20111010
  Serious: Yes (Death)
  Sender: FDA-Public Use
  Company Number: NL-PFIZER INC-2009212915

PATIENT
  Age: 61 Year
  Sex: Male
  Weight: 76 kg

DRUGS (9)
  1. PLACEBO [Suspect]
     Indication: CARDIAC FAILURE
     Dosage: UNK
     Route: 048
     Dates: start: 20080623, end: 20080722
  2. SIMVASTATIN [Suspect]
     Indication: HYPERCHOLESTEROLAEMIA
     Dosage: 40 MG, UNK
     Route: 048
     Dates: start: 20071107, end: 20090507
  3. PERINDOPRIL ERBUMINE [Concomitant]
     Indication: CARDIAC FAILURE
     Dosage: 4 MG, UNK
     Route: 048
     Dates: start: 20070930, end: 20090507
  4. BISOPROLOL [Concomitant]
     Indication: CARDIAC FAILURE
     Dosage: 5 MG, UNK
     Route: 048
     Dates: start: 20070926, end: 20090507
  5. ACETOSAL [Concomitant]
     Indication: THROMBOSIS PROPHYLAXIS
     Dosage: 80 MG, UNK
     Route: 048
     Dates: start: 20071107, end: 20090507
  6. PLACEBO [Suspect]
     Dosage: UNK
     Route: 048
     Dates: start: 20080723, end: 20090507
  7. METFORMIN HCL [Suspect]
     Indication: DIABETES MELLITUS
     Dosage: 500 MG, UNK
     Route: 048
     Dates: start: 20071107, end: 20090507
  8. SPIRIVA [Suspect]
     Indication: CARDIAC FAILURE
     Dosage: 18 UG, UNK
     Route: 048
     Dates: start: 20071121, end: 20090507
  9. FUROSEMIDE [Concomitant]
     Indication: CARDIAC FAILURE
     Dosage: 8.6 MG, UNK
     Route: 048
     Dates: start: 20080414, end: 20090507

REACTIONS (1)
  - SUDDEN DEATH [None]
